FAERS Safety Report 9140376 (Version 1)
Quarter: 2013Q1

REPORT INFORMATION
  Report Type: Spontaneous
  Country: GB (occurrence: GB)
  Receive Date: 20130305
  Receipt Date: 20130305
  Transmission Date: 20140127
  Serious: Yes (Other)
  Sender: FDA-Public Use
  Company Number: GB-ELI_LILLY_AND_COMPANY-GB201303000060

PATIENT
  Age: 55 Year
  Sex: Female

DRUGS (2)
  1. BYETTA [Suspect]
     Dosage: 5 UG, BID
     Route: 058
     Dates: start: 20111111
  2. GLICLAZIDE [Concomitant]
     Dosage: 120 MG, BID
     Route: 048
     Dates: start: 20130201

REACTIONS (1)
  - Pancreatic mass [Not Recovered/Not Resolved]
